FAERS Safety Report 5105193-9 (Version None)
Quarter: 2006Q3

REPORT INFORMATION
  Report Type: 
  Country: None (occurrence: None)
  Receive Date: 20060911
  Receipt Date: 20060829
  Transmission Date: 20061208
  Serious: Yes (Death, Life-Threatening)
  Sender: FDA-Public Use
  Company Number: HQWYE170617MAR05

PATIENT
  Age: 62 Year
  Sex: Male
  Weight: 72.7 kg

DRUGS (28)
  1. MYLOTARG [Suspect]
     Indication: ACUTE MYELOID LEUKAEMIA
     Dosage: A SINGLE 10 MG, DOSE, INTRAVENOUS; 11 MG, INTRAVENOUS
     Route: 042
     Dates: start: 20041124, end: 20041124
  2. CYTARABINE [Suspect]
     Dosage: 11 MG, INTRAVENOUS
     Route: 042
     Dates: start: 20041209, end: 20041214
  3. ETOPOSIDE [Suspect]
     Dosage: 11 MG, INTRAVENOUS
     Route: 042
     Dates: start: 20041209, end: 20041214
  4. NOVANTRONE [Suspect]
     Dosage: 11 MG, INTRAVENOUS
     Route: 042
     Dates: start: 20041209, end: 20041214
  5. PANTOPRAZOLE SODIUM [Concomitant]
  6. ACYCLOVIR (ACIVLOVIR) [Concomitant]
  7. ACETAMINOPHEN [Concomitant]
  8. DIPHENHYDRAMINE HCL [Concomitant]
  9. LORAZEPAM [Concomitant]
  10. LEVOFLOXACIN [Concomitant]
  11. VORICONAZOLE (VORICONAZOLE) [Concomitant]
  12. NYSTATIN [Concomitant]
  13. NEUPOGEN [Concomitant]
  14. SODIUM BICARBONATE IN PLASTIC CONTAINER [Concomitant]
  15. SODIUM CHLORIDE 0.9% [Concomitant]
  16. POTASSIUM CHLORIDE [Concomitant]
  17. VANCOMYCIN [Concomitant]
  18. FUROSEMIDE [Concomitant]
  19. MICONAZOLE NITRATE [Concomitant]
  20. DAPSONE [Concomitant]
  21. FOLIC ACID [Concomitant]
  22. ZOSYN [Concomitant]
  23. DOCUSATE SODIUM (DOCUSATE SODIUM) [Concomitant]
  24. SENNA (SENNA) [Concomitant]
  25. PROMETHAZINE [Concomitant]
  26. LOPERAMIDE HCL [Concomitant]
  27. OXYCODONE HCL [Concomitant]
  28. AMICAR [Concomitant]

REACTIONS (15)
  - BILIRUBIN CONJUGATED INCREASED [None]
  - BLOOD BILIRUBIN INCREASED [None]
  - BLOOD CALCIUM DECREASED [None]
  - CARBON DIOXIDE DECREASED [None]
  - DISEASE PROGRESSION [None]
  - DRUG TOXICITY [None]
  - DYSPNOEA [None]
  - FLUID OVERLOAD [None]
  - HYPOVOLAEMIA [None]
  - INFECTION [None]
  - LEUKAEMIA RECURRENT [None]
  - PNEUMONIA [None]
  - RENAL FAILURE ACUTE [None]
  - RESPIRATORY DISTRESS [None]
  - WEIGHT INCREASED [None]
